FAERS Safety Report 4342353-9 (Version None)
Quarter: 2004Q2

REPORT INFORMATION
  Report Type: 
  Country: None (occurrence: None)
  Receive Date: 20040416
  Receipt Date: 20040221
  Transmission Date: 20050107
  Serious: Yes (Hospitalization, Other)
  Sender: FDA-Public Use
  Company Number: KII-2004-0009457

PATIENT
  Age: 29 Year
  Sex: Male

DRUGS (3)
  1. OXYCONTIN [Suspect]
     Indication: DRUG USE FOR UNKNOWN INDICATION
  2. BENZODIAZEPINE DERIVATIVES () [Suspect]
     Indication: DRUG USE FOR UNKNOWN INDICATION
  3. ACETAMINOPHEN [Concomitant]
     Indication: DRUG USE FOR UNKNOWN INDICATION

REACTIONS (7)
  - AGITATION [None]
  - APNOEA [None]
  - BLOOD PRESSURE DIASTOLIC DECREASED [None]
  - DYSPNOEA [None]
  - LOSS OF CONSCIOUSNESS [None]
  - MEDICATION ERROR [None]
  - POLYSUBSTANCE ABUSE [None]
